FAERS Safety Report 7332846-4 (Version None)
Quarter: 2011Q1

REPORT INFORMATION
  Report Type: 
  Country: None (occurrence: None)
  Receive Date: 20110304
  Receipt Date: 20110223
  Transmission Date: 20110831
  Serious: Yes (Hospitalization, Disabling, Other)
  Sender: FDA-Public Use
  Company Number: US-MERCK-0805USA00741

PATIENT
  Age: 69 Year
  Sex: Female
  Weight: 54 kg

DRUGS (7)
  1. ATENOLOL [Concomitant]
     Indication: HEART RATE IRREGULAR
     Route: 065
     Dates: start: 19980101
  2. FOSAMAX [Suspect]
     Route: 048
     Dates: start: 20011001
  3. PREMARIN [Concomitant]
     Indication: HORMONE REPLACEMENT THERAPY
     Route: 065
     Dates: start: 19590101
  4. FOSAMAX [Suspect]
     Route: 048
     Dates: start: 20031001, end: 20061201
  5. SYNTHROID [Concomitant]
     Indication: HYPOTHYROIDISM
     Route: 065
  6. FOSAMAX [Suspect]
     Route: 048
  7. FOSAMAX [Suspect]
     Indication: SENILE OSTEOPOROSIS
     Route: 048
     Dates: start: 19970401, end: 20011001

REACTIONS (75)
  - OSTEONECROSIS OF JAW [None]
  - ADVERSE EVENT [None]
  - INAPPROPRIATE SCHEDULE OF DRUG ADMINISTRATION [None]
  - ADVERSE DRUG REACTION [None]
  - DIARRHOEA [None]
  - DENTAL CARIES [None]
  - INFLAMMATORY PAIN [None]
  - HALLUCINATION [None]
  - ALOPECIA [None]
  - PHLEBITIS [None]
  - ORAL TORUS [None]
  - LACERATION [None]
  - ANXIETY [None]
  - CARDIOVASCULAR INSUFFICIENCY [None]
  - POLYP [None]
  - NASAL ULCER [None]
  - ANTIPHOSPHOLIPID ANTIBODIES POSITIVE [None]
  - OEDEMA PERIPHERAL [None]
  - SPINAL OSTEOARTHRITIS [None]
  - OROPHARYNGEAL PAIN [None]
  - SEASONAL ALLERGY [None]
  - GALLBLADDER DISORDER [None]
  - INTERVERTEBRAL DISC DEGENERATION [None]
  - SINUSITIS [None]
  - JOINT EFFUSION [None]
  - HERPES ZOSTER [None]
  - GOUTY ARTHRITIS [None]
  - GINGIVAL DISORDER [None]
  - PAIN IN EXTREMITY [None]
  - OSTEOARTHRITIS [None]
  - MOUTH ULCERATION [None]
  - VERTIGO [None]
  - SIALOADENITIS [None]
  - SCIATICA [None]
  - LUMBAR SPINAL STENOSIS [None]
  - LICHEN PLANUS [None]
  - EYE DISORDER [None]
  - EUSTACHIAN TUBE DYSFUNCTION [None]
  - EDENTULOUS [None]
  - CARDIAC DISORDER [None]
  - BRONCHITIS CHRONIC [None]
  - CELLULITIS [None]
  - WOUND [None]
  - ECCHYMOSIS [None]
  - JOINT INJURY [None]
  - EPISTAXIS [None]
  - CATARACT [None]
  - OVERDOSE [None]
  - DEEP VEIN THROMBOSIS [None]
  - DIZZINESS [None]
  - TOOTH ABSCESS [None]
  - DRUG HYPERSENSITIVITY [None]
  - ARTHRALGIA [None]
  - ARTHROPATHY [None]
  - GASTROINTESTINAL DISORDER [None]
  - ASTHMA [None]
  - BENIGN NEOPLASM [None]
  - CORNEAL ABRASION [None]
  - RHINITIS [None]
  - UPPER-AIRWAY COUGH SYNDROME [None]
  - BURSITIS [None]
  - KYPHOSCOLIOSIS [None]
  - KNEE DEFORMITY [None]
  - FALL [None]
  - BACK PAIN [None]
  - CARDIAC FAILURE CONGESTIVE [None]
  - OSTEOMYELITIS [None]
  - CONSTIPATION [None]
  - CONFUSIONAL STATE [None]
  - ASTHENIA [None]
  - RADICULITIS LUMBOSACRAL [None]
  - TOOTH DISORDER [None]
  - LYMPHADENOPATHY [None]
  - LUNG DISORDER [None]
  - DACRYOSTENOSIS ACQUIRED [None]
